FAERS Safety Report 4681186-0 (Version None)
Quarter: 2005Q2

REPORT INFORMATION
  Report Type: 
  Country: None (occurrence: None)
  Receive Date: 20050602
  Receipt Date: 20050425
  Transmission Date: 20051028
  Serious: Yes (Hospitalization)
  Sender: FDA-Public Use
  Company Number: 2005S1002738

PATIENT
  Age: 71 Year
  Sex: Male
  Weight: 52.1637 kg

DRUGS (10)
  1. EXTENDED PHENYTOIN SODIUM [Suspect]
     Indication: CONVULSION
     Dosage: SEE IMAGE
     Route: 048
     Dates: start: 20031201, end: 20050101
  2. EXTENDED PHENYTOIN SODIUM [Suspect]
     Indication: CONVULSION
     Dosage: SEE IMAGE
     Route: 048
     Dates: start: 20031201, end: 20050101
  3. CLOPIDOGREL BISULFATE [Concomitant]
  4. CALCIUM GLUCONATE [Concomitant]
  5. ASPIRIN [Concomitant]
  6. LOPRAZEPAM [Concomitant]
  7. GALANTAMINE [Concomitant]
  8. HYDROBROMIDE [Concomitant]
  9. QUETIAPINE FUMARATE [Concomitant]
  10. GABAPENTIN [Concomitant]

REACTIONS (3)
  - ANTICONVULSANT DRUG LEVEL BELOW THERAPEUTIC [None]
  - INCORRECT ROUTE OF DRUG ADMINISTRATION [None]
  - PHARMACEUTICAL PRODUCT COMPLAINT [None]
